FAERS Safety Report 7442579-1 (Version None)
Quarter: 2011Q2

REPORT INFORMATION
  Report Type: 
  Country: None (occurrence: None)
  Receive Date: 20110428
  Receipt Date: 20110422
  Transmission Date: 20111010
  Serious: Yes (Death)
  Sender: FDA-Public Use
  Company Number: PHHY2011US28443

PATIENT
  Sex: Female
  Weight: 28.571 kg

DRUGS (6)
  1. FLUCONAZOLE [Concomitant]
     Dosage: 200 MG, BID
  2. EXJADE [Suspect]
     Dosage: 1000 MG, DAILY
     Route: 048
     Dates: end: 20100901
  3. MOXIFLOXACIN [Concomitant]
     Dosage: 400 MG, UNK
  4. EXJADE [Suspect]
     Indication: IRON OVERLOAD
     Dosage: 300 MG, BID
     Route: 048
     Dates: start: 20100211
  5. MYFORTIC [Concomitant]
     Indication: IMMUNOSUPPRESSION
     Dosage: 720 MG, BID
     Route: 048
  6. TACROLIMUS [Concomitant]
     Indication: IMMUNOSUPPRESSION
     Dosage: 0.5 MG, UNK

REACTIONS (3)
  - BACTERIAL INFECTION [None]
  - SEPSIS [None]
  - MULTI-ORGAN FAILURE [None]
